FAERS Safety Report 13563464 (Version 1)
Quarter: 2017Q2

REPORT INFORMATION
  Report Type: Spontaneous
  Country: DE (occurrence: DE)
  Receive Date: 20170519
  Receipt Date: 20170519
  Transmission Date: 20170830
  Serious: Yes (Hospitalization)
  Sender: FDA-Public Use
  Company Number: DE-JNJFOC-20170516938

PATIENT
  Age: 75 Year
  Sex: Male
  Weight: 120 kg

DRUGS (1)
  1. XARELTO [Suspect]
     Active Substance: RIVAROXABAN
     Indication: PULMONARY EMBOLISM
     Route: 048
     Dates: start: 201503

REACTIONS (2)
  - Haemarthrosis [Recovered/Resolved]
  - Chondrocalcinosis pyrophosphate [Recovered/Resolved]

NARRATIVE: CASE EVENT DATE: 20170228
